FAERS Safety Report 16940566 (Version 4)
Quarter: 2020Q3

REPORT INFORMATION
  Report Type: Spontaneous
  Country: US (occurrence: US)
  Receive Date: 20191021
  Receipt Date: 20200930
  Transmission Date: 20201102
  Serious: Yes (Hospitalization)
  Sender: FDA-Public Use
  Company Number: US-VERTEX PHARMACEUTICALS-2019-010070

PATIENT
  Age: 15 Year
  Sex: Male

DRUGS (6)
  1. VORICONAZOLE. [Concomitant]
     Active Substance: VORICONAZOLE
  2. PULMOZYME [Suspect]
     Active Substance: DORNASE ALFA
     Indication: CYSTIC FIBROSIS
     Dosage: UNK, QD
     Dates: start: 20140620
  3. SYMDEKO [Suspect]
     Active Substance: IVACAFTOR\TEZACAFTOR
     Indication: CYSTIC FIBROSIS
     Dosage: 100MG TEZACAFTOR/150MG IVACAFTOR AM; 150MG IVACAFTOR PM
     Route: 048
     Dates: start: 20180512
  4. SYMDEKO [Interacting]
     Active Substance: IVACAFTOR\TEZACAFTOR
     Dosage: SATURDAY AND TUESDAY IN A WEEK
     Route: 048
     Dates: end: 20191204
  5. TOBRAMYCIN. [Concomitant]
     Active Substance: TOBRAMYCIN
  6. CETRIZINE [Concomitant]
     Active Substance: CETIRIZINE HYDROCHLORIDE

REACTIONS (3)
  - Infective pulmonary exacerbation of cystic fibrosis [Unknown]
  - Bronchial secretion retention [Unknown]
  - Drug interaction [Unknown]

NARRATIVE: CASE EVENT DATE: 2019
